FAERS Safety Report 9747650 (Version 2)
Quarter: 2013Q4

REPORT INFORMATION
  Report Type: Spontaneous
  Country: US (occurrence: US)
  Receive Date: 20131212
  Receipt Date: 20131212
  Transmission Date: 20140711
  Serious: Yes (Disabling, Other)
  Sender: FDA-Public Use
  Company Number: US-JNJFOC-20131106046

PATIENT
  Age: 48 Year
  Sex: Male
  Weight: 68.03 kg

DRUGS (10)
  1. IBUPROFEN [Suspect]
     Indication: PAIN IN EXTREMITY
     Route: 065
     Dates: start: 2013, end: 20131106
  2. IBUPROFEN [Suspect]
     Indication: ARTHRALGIA
     Route: 065
     Dates: start: 2013, end: 20131106
  3. IBUPROFEN [Suspect]
     Indication: PAIN IN EXTREMITY
     Route: 065
     Dates: start: 2013, end: 20131106
  4. CELEBREX [Suspect]
     Indication: PAIN IN EXTREMITY
     Route: 065
     Dates: start: 20131102, end: 201311
  5. CELEBREX [Suspect]
     Indication: ARTHRALGIA
     Route: 065
     Dates: start: 20131102, end: 201311
  6. CELEBREX [Suspect]
     Indication: PAIN IN EXTREMITY
     Route: 065
     Dates: start: 20131102, end: 201311
  7. GABAPENTIN [Suspect]
     Indication: PAIN IN EXTREMITY
     Route: 065
     Dates: start: 201311
  8. GABAPENTIN [Suspect]
     Indication: PAIN IN EXTREMITY
     Route: 065
  9. OMEPRAZOLE [Concomitant]
     Indication: GASTROINTESTINAL DISORDER
     Route: 065
  10. FLUTICASONE [Concomitant]
     Indication: HYPERSENSITIVITY
     Route: 065

REACTIONS (6)
  - Activities of daily living impaired [Unknown]
  - Intentional drug misuse [Unknown]
  - Drug ineffective [Unknown]
  - Drug dose omission [Unknown]
  - Pain in extremity [Not Recovered/Not Resolved]
  - Abdominal discomfort [Unknown]
